FAERS Safety Report 7641401-8 (Version None)
Quarter: 2011Q3

REPORT INFORMATION
  Report Type: 
  Country: None (occurrence: None)
  Receive Date: 20110728
  Receipt Date: 20091107
  Transmission Date: 20111222
  Serious: Yes (Other)
  Sender: FDA-Public Use
  Company Number: US-BAYER-200938753NA

PATIENT
  Age: 74 Year
  Sex: Female
  Weight: 68.027 kg

DRUGS (39)
  1. NITROGLYCERIN [Concomitant]
     Dosage: 0.9
     Route: 042
     Dates: start: 20021125
  2. CARDIZEM CD [Concomitant]
     Dosage: 100 MG, IN THE PM
     Route: 048
  3. PREDNISONE [Concomitant]
     Dosage: UNK
     Dates: start: 20021122
  4. PAPAVERINE [Concomitant]
     Dosage: UNK
     Route: 042
     Dates: start: 20021125
  5. LASIX [Concomitant]
     Dosage: UNK, BID
     Route: 048
  6. EPOGEN [Concomitant]
     Dosage: 10000 U, UNK
     Route: 058
  7. HEPARIN [Concomitant]
     Dosage: UNK
     Route: 042
     Dates: start: 20021120
  8. PANTOPRAZOLE [Concomitant]
     Dosage: 40 MG, QD
     Route: 048
  9. MANNITOL [Concomitant]
     Dosage: 25 G, PUMP PRIME
     Dates: start: 20021125
  10. LASIX [Concomitant]
     Dosage: 100 MG
     Route: 042
     Dates: start: 20021125
  11. PROTONIX [Concomitant]
     Dosage: 40 MG, QD
     Route: 048
  12. SODIUM BICARBONATE [Concomitant]
     Dosage: 300 MG, BID
     Route: 048
  13. EPINEPHRINE [Concomitant]
     Dosage: 0.10
     Route: 042
     Dates: start: 20021125
  14. HEPARIN [Concomitant]
     Dosage: 27000 U, UNK
     Route: 042
     Dates: start: 20021125
  15. PROPOFOL [Concomitant]
     Dosage: 70
     Route: 042
     Dates: start: 20021125
  16. FORANE [Concomitant]
     Dosage: 1.4%
     Route: 042
     Dates: start: 20021125
  17. INSULIN [Concomitant]
     Dosage: UNK
     Route: 042
     Dates: start: 20021125
  18. TRASYLOL [Suspect]
     Indication: CORONARY ARTERY BYPASS
     Dosage: 100 ML, PRIME
     Route: 042
     Dates: start: 20021125
  19. NITROGLYCERIN [Concomitant]
     Dosage: 1 INCH Q6HR
     Route: 061
  20. GENTAMICIN [Concomitant]
     Dosage: 80 MG, UNK
     Route: 042
     Dates: start: 20021125
  21. ANCEF [Concomitant]
     Dosage: 1 G, PUMP PRIME
     Dates: start: 20021125
  22. CARDIZEM CD [Concomitant]
     Dosage: 300 MG, IN THE AM
     Route: 048
  23. LEVOPHED [Concomitant]
     Dosage: UNK
     Route: 042
     Dates: start: 20021125
  24. HEPARIN [Concomitant]
     Dosage: 10000 PUMP PRIME
     Dates: start: 20021125
  25. KEFZOL [Concomitant]
     Dosage: 1 G, UNK
     Route: 042
     Dates: start: 20021125
  26. AMIODARONE HCL [Concomitant]
     Dosage: 15 MG, UNK
     Route: 042
     Dates: start: 20021125
  27. OPTIRAY 300 [Concomitant]
     Indication: CATHETERISATION CARDIAC
     Dosage: 50 ML, UNK
     Dates: start: 20021122
  28. RENAGEL [Concomitant]
     Dosage: 800 MG, TID
     Route: 048
  29. NORVASC [Concomitant]
     Dosage: 10 MG, QD
     Route: 048
  30. ACETYLSALICYLIC ACID SRT [Concomitant]
     Dosage: DAILY
     Route: 048
  31. DOPAMINE HCL [Concomitant]
     Dosage: 29 MG, UNK
     Route: 042
     Dates: start: 20021125
  32. PROTAMINE SULFATE [Concomitant]
     Dosage: 270 MG, UNK
     Route: 042
     Dates: start: 20021125
  33. RED BLOOD CELLS [Concomitant]
     Dosage: 1 U, UNK
     Route: 042
     Dates: start: 20021125
  34. CLONIDINE [Concomitant]
     Dosage: 0.2 MG, TID
     Route: 048
  35. LASIX [Concomitant]
     Dosage: 80 MG, QD
     Route: 048
  36. NITROGLYCERIN [Concomitant]
     Dosage: 0.4 MG, UNK
     Route: 060
  37. FERROUS SULFATE TAB [Concomitant]
     Dosage: DAILY
     Route: 048
  38. EPOETIN ALFA [Concomitant]
     Dosage: 10000 U, EVERY WEDNESDAY
     Route: 058
  39. FENTANYL [Concomitant]
     Dosage: 600
     Route: 042
     Dates: start: 20021125

REACTIONS (9)
  - RENAL INJURY [None]
  - FEAR [None]
  - RENAL FAILURE [None]
  - PAIN [None]
  - RENAL IMPAIRMENT [None]
  - EMOTIONAL DISTRESS [None]
  - ANXIETY [None]
  - STRESS [None]
  - UNEVALUABLE EVENT [None]
